FAERS Safety Report 8329868-3 (Version None)
Quarter: 2012Q2

REPORT INFORMATION
  Report Type: 
  Country: None (occurrence: None)
  Receive Date: 20120502
  Receipt Date: 20120418
  Transmission Date: 20120825
  Serious: Yes (Other)
  Sender: FDA-Public Use
  Company Number: US-BRISTOL-MYERS SQUIBB COMPANY-16504102

PATIENT
  Age: 56 Year
  Sex: Female

DRUGS (4)
  1. ABILIFY [Suspect]
     Indication: DEPRESSION
     Dosage: QAM
     Route: 048
  2. EFFEXOR [Suspect]
  3. CELEXA [Suspect]
     Dosage: QAM
     Route: 048
  4. LEXAPRO [Suspect]

REACTIONS (4)
  - WEIGHT INCREASED [None]
  - PERICARDIAL EFFUSION [None]
  - ELECTROCARDIOGRAM QT PROLONGED [None]
  - OEDEMA DUE TO CARDIAC DISEASE [None]
